FAERS Safety Report 18850450 (Version 1)
Quarter: 2021Q1

REPORT INFORMATION
  Report Type: Report from Study
  Country: None (occurrence: US)
  Receive Date: 20210204
  Receipt Date: 20210204
  Transmission Date: 20210420
  Serious: Yes (Other)
  Sender: FDA-Public Use
  Company Number: US-ABBVIE-20K-163-3574645-00

PATIENT
  Sex: Male

DRUGS (3)
  1. HUMIRA [Suspect]
     Active Substance: ADALIMUMAB
     Indication: PSORIASIS
     Dosage: TOOK HUMIRA FOR MORE THAN 7 YEARS.
     Route: 058
     Dates: end: 2020
  2. HUMIRA [Suspect]
     Active Substance: ADALIMUMAB
     Indication: PSORIASIS
     Dosage: DAY 1
     Route: 058
     Dates: start: 202009, end: 202009
  3. HUMIRA [Suspect]
     Active Substance: ADALIMUMAB
     Dosage: DAY 8
     Route: 058
     Dates: start: 2020

REACTIONS (9)
  - Drug ineffective [Unknown]
  - Intentional product misuse [Unknown]
  - Psoriasis [Recovering/Resolving]
  - Pain [Recovered/Resolved]
  - Surgery [Unknown]
  - General physical condition abnormal [Recovering/Resolving]
  - Ligament rupture [Unknown]
  - Product prescribing error [Unknown]
  - Pruritus [Recovered/Resolved]

NARRATIVE: CASE EVENT DATE: 2016
